FAERS Safety Report 8556369 (Version 3)
Quarter: 2013Q4

REPORT INFORMATION
  Report Type: Spontaneous
  Country: BR (occurrence: BR)
  Receive Date: 20120510
  Receipt Date: 20131226
  Transmission Date: 20140711
  Serious: Yes (Other)
  Sender: FDA-Public Use
  Company Number: BR-PFIZER INC-2012108955

PATIENT
  Age: 72 Year
  Sex: Female
  Weight: 69 kg

DRUGS (5)
  1. XALACOM [Suspect]
     Indication: GLAUCOMA
     Dosage: [LATANOPROST 1.5UG] / [TIMOLOL MALEATE 150UG] (ONE DROP IN RIGHT EYE), UNSPECIFIED FREQUENCY
     Route: 047
     Dates: start: 2005
  2. XALACOM [Suspect]
     Indication: CATARACT
  3. XALATAN [Suspect]
     Indication: GLAUCOMA
     Dosage: 1 DROP IN EACH EYE (3 UG), 1X/DAY
     Route: 047
     Dates: start: 2003, end: 2005
  4. XALATAN [Suspect]
     Indication: CATARACT
  5. ARADOIS [Concomitant]
     Indication: HYPERTENSION
     Dosage: ONE TABLET DAILY

REACTIONS (2)
  - Glaucoma [Unknown]
  - Cataract [Unknown]
